FAERS Safety Report 22015219 (Version 1)
Quarter: 2023Q1

REPORT INFORMATION
  Report Type: Spontaneous
  Country: GB (occurrence: GB)
  Receive Date: 20230221
  Receipt Date: 20230221
  Transmission Date: 20230418
  Serious: Yes (Other)
  Sender: FDA-Public Use
  Company Number: None

PATIENT
  Sex: Female
  Weight: 92 kg

DRUGS (6)
  1. RAMIPRIL [Suspect]
     Active Substance: RAMIPRIL
     Indication: Hypertension
     Dosage: 5 MG
     Dates: start: 20230203
  2. ADALIMUMAB [Concomitant]
     Active Substance: ADALIMUMAB
  3. ETODOLAC [Concomitant]
     Active Substance: ETODOLAC
  4. LEFLUNOMIDE [Concomitant]
     Active Substance: LEFLUNOMIDE
  5. OMEPRAZOLE [Concomitant]
     Active Substance: OMEPRAZOLE
  6. PENICILLIN V [Concomitant]
     Active Substance: PENICILLIN V

REACTIONS (3)
  - Vertigo [Recovered/Resolved]
  - Deafness [Not Recovered/Not Resolved]
  - Tinnitus [Recovering/Resolving]

NARRATIVE: CASE EVENT DATE: 20230203
